FAERS Safety Report 18905548 (Version 1)
Quarter: 2021Q1

REPORT INFORMATION
  Report Type: Spontaneous
  Country: CA (occurrence: CA)
  Receive Date: 20210217
  Receipt Date: 20210217
  Transmission Date: 20210420
  Serious: Yes (Hospitalization, Disabling, Other)
  Sender: FDA-Public Use
  Company Number: CA-PFIZER INC-2021138386

PATIENT

DRUGS (9)
  1. AA CLOZAPINE [Suspect]
     Active Substance: CLOZAPINE
     Indication: OPPOSITIONAL DEFIANT DISORDER
     Dosage: 50 MG 1 EVERY 24 HOURS
     Route: 048
  2. LITHIUM. [Suspect]
     Active Substance: LITHIUM
     Indication: MAJOR DEPRESSION
     Dosage: 150 MG, 1X/DAY
     Route: 048
  3. PAROXETINE HYDROCHLORIDE. [Suspect]
     Active Substance: PAROXETINE HYDROCHLORIDE
     Dosage: 15 MG 1 EVERY 24 HOURS
     Route: 048
  4. PROPANOLOL HCL [Suspect]
     Active Substance: PROPRANOLOL HYDROCHLORIDE
     Indication: TACHYCARDIA
     Dosage: 20 MG, 2X/DAY
     Route: 048
  5. AA CLOZAPINE [Suspect]
     Active Substance: CLOZAPINE
     Dosage: 100 MG, 1X/DAY
     Route: 048
  6. AA CLOZAPINE [Suspect]
     Active Substance: CLOZAPINE
     Dosage: 150 MG 1 EVERY 24 HOURS
     Route: 048
  7. PAROXETINE HYDROCHLORIDE. [Suspect]
     Active Substance: PAROXETINE HYDROCHLORIDE
     Indication: MAJOR DEPRESSION
     Dosage: 15 MG 1 EVERY 24 HOURS
     Route: 048
  8. CONCERTA [Suspect]
     Active Substance: METHYLPHENIDATE HYDROCHLORIDE
     Indication: ATTENTION DEFICIT HYPERACTIVITY DISORDER
     Dosage: 90 MG 1 EVERY 24 HOURS
     Route: 048
  9. PAROXETINE. [Concomitant]
     Active Substance: PAROXETINE
     Indication: ANXIETY
     Dosage: 20 MG
     Route: 048

REACTIONS (8)
  - Obesity [Unknown]
  - Intentional product use issue [Unknown]
  - Off label use [Unknown]
  - Asthma [Unknown]
  - Respiratory disorder [Unknown]
  - Contraindicated product administered [Unknown]
  - Respiratory distress [Unknown]
  - Viral infection [Unknown]
